FAERS Safety Report 5782163-9 (Version None)
Quarter: 2008Q2

REPORT INFORMATION
  Report Type: 
  Country: None (occurrence: None)
  Receive Date: 20080623
  Receipt Date: 20080620
  Transmission Date: 20081010
  Serious: Yes (Death)
  Sender: FDA-Public Use
  Company Number: US-ASTRAZENECA-2008UW09098

PATIENT
  Age: 40 Year
  Sex: Female

DRUGS (3)
  1. SEROQUEL [Suspect]
     Indication: SCHIZOPHRENIA, PARANOID TYPE
     Route: 048
     Dates: start: 20050101
  2. TRAZODONE HCL [Concomitant]
     Route: 048
  3. COGENTIN [Concomitant]
     Route: 048

REACTIONS (2)
  - DEATH [None]
  - MUSCULOSKELETAL STIFFNESS [None]
